FAERS Safety Report 6915227-4 (Version None)
Quarter: 2010Q3

REPORT INFORMATION
  Report Type: 
  Country: None (occurrence: None)
  Receive Date: 20100804
  Receipt Date: 20100804
  Transmission Date: 20110219
  Serious: Yes (Other)
  Sender: FDA-Public Use
  Company Number: None

PATIENT
  Age: 55 Year
  Sex: Female
  Weight: 52.1637 kg

DRUGS (1)
  1. PREDNISONE [Suspect]
     Indication: SYSTEMIC MASTOCYTOSIS
     Dosage: 2MGS BID PO
     Route: 048
     Dates: start: 20070607, end: 20100803

REACTIONS (10)
  - ASTHENIA [None]
  - DRUG WITHDRAWAL SYNDROME [None]
  - ENERGY INCREASED [None]
  - INCREASED APPETITE [None]
  - MALAISE [None]
  - PRODUCT MEASURED POTENCY ISSUE [None]
  - PRODUCT QUALITY ISSUE [None]
  - SEXUAL DYSFUNCTION [None]
  - SKIN DISCOLOURATION [None]
  - WEIGHT INCREASED [None]
